FAERS Safety Report 5510938-X (Version None)
Quarter: 2007Q4

REPORT INFORMATION
  Report Type: 
  Country: None (occurrence: None)
  Receive Date: 20071106
  Receipt Date: 20071106
  Transmission Date: 20080405
  Serious: Yes (Other)
  Sender: FDA-Public Use
  Company Number: None

PATIENT
  Sex: Female

DRUGS (1)
  1. LUPRON [Suspect]
     Indication: ENDOMETRIOSIS
     Dosage: INJECT 3.75MG MONTHLY IM
     Route: 030

REACTIONS (4)
  - FEELING ABNORMAL [None]
  - HOT FLUSH [None]
  - NIGHT SWEATS [None]
  - SUICIDAL IDEATION [None]
